FAERS Safety Report 21627466 (Version 3)
Quarter: 2023Q4

REPORT INFORMATION
  Report Type: Report from Study
  Country: US (occurrence: US)
  Receive Date: 20221122
  Receipt Date: 20231001
  Transmission Date: 20240109
  Serious: Yes (Hospitalization, Other)
  Sender: FDA-Public Use
  Company Number: US-JNJFOC-20221136458

PATIENT
  Age: 53 Year
  Sex: Female
  Weight: 59.02 kg

DRUGS (9)
  1. SPRAVATO [Suspect]
     Active Substance: ESKETAMINE
     Indication: Depression
     Dosage: 56 MG, 1 TOTAL DOSES
     Dates: start: 20221007, end: 20221007
  2. SPRAVATO [Suspect]
     Active Substance: ESKETAMINE
     Indication: Major depression
     Dosage: 84 MG, 1 TOTAL DOSES
     Dates: start: 20221010, end: 20221010
  3. SPRAVATO [Suspect]
     Active Substance: ESKETAMINE
     Dosage: 56 MG, 3 TOTAL DOSES
     Dates: start: 20221014, end: 20221021
  4. SPRAVATO [Suspect]
     Active Substance: ESKETAMINE
     Dosage: 84 MG, 4 TOTAL DOSES
     Dates: start: 20221024, end: 20221104
  5. SPRAVATO [Suspect]
     Active Substance: ESKETAMINE
     Dosage: 84 MG, 1 TOTAL DOSES
     Dates: start: 20221111, end: 20221111
  6. AMITRIPTYLINE [Concomitant]
     Active Substance: AMITRIPTYLINE
     Indication: Antidepressant therapy
     Route: 048
  7. ARIPIPRAZOLE [Concomitant]
     Active Substance: ARIPIPRAZOLE
     Indication: Psychotic disorder
     Route: 048
  8. CYMBALTA [Concomitant]
     Active Substance: DULOXETINE HYDROCHLORIDE
     Indication: Antidepressant therapy
     Route: 048
  9. ADEMETIONINE [Concomitant]
     Active Substance: ADEMETIONINE
     Indication: Hormone level abnormal
     Route: 048

REACTIONS (7)
  - Unresponsive to stimuli [Recovered/Resolved]
  - Angina pectoris [Recovered/Resolved]
  - Bradycardia [Recovered/Resolved]
  - Hypotension [Recovered/Resolved]
  - Sedation [Recovered/Resolved]
  - Feeling abnormal [Recovering/Resolving]
  - Dissociation [Recovered/Resolved]

NARRATIVE: CASE EVENT DATE: 20221111
